FAERS Safety Report 15621749 (Version 1)
Quarter: 2018Q4

REPORT INFORMATION
  Report Type: Spontaneous
  Country: BR (occurrence: BR)
  Receive Date: 20181115
  Receipt Date: 20181115
  Transmission Date: 20190205
  Serious: Yes (Other)
  Sender: FDA-Public Use
  Company Number: BR-PFIZER INC-2018467617

PATIENT
  Sex: Female

DRUGS (1)
  1. FRONTAL XR [Suspect]
     Active Substance: ALPRAZOLAM
     Route: 048

REACTIONS (3)
  - Drug dependence [Unknown]
  - Nervousness [Unknown]
  - Bladder cancer [Unknown]

NARRATIVE: CASE EVENT DATE: 2017
